FAERS Safety Report 22044929 (Version 1)
Quarter: 2023Q1

REPORT INFORMATION
  Report Type: Spontaneous
  Country: US (occurrence: None)
  Receive Date: 20230227
  Receipt Date: 20230227
  Transmission Date: 20230418
  Serious: No
  Sender: FDA-Public Use
  Company Number: None

PATIENT
  Age: 52 Year
  Sex: Female
  Weight: 68.85 kg

DRUGS (8)
  1. DUPIXENT [Suspect]
     Active Substance: DUPILUMAB
     Indication: Eczema
     Dosage: OTHER QUANTITY : 2 INJECTION(S);?OTHER FREQUENCY : EVERY 2 WEEKS;?
     Route: 058
     Dates: start: 20230130, end: 20230215
  2. TRECIBA [Concomitant]
  3. MOUNJARO [Concomitant]
     Active Substance: TIRZEPATIDE
  4. VALSARTAN [Concomitant]
     Active Substance: VALSARTAN
  5. NEBIVOLOV [Concomitant]
  6. ZYRTEC [Concomitant]
     Active Substance: CETIRIZINE HYDROCHLORIDE
  7. TACRILIMUS [Concomitant]
  8. BENADRYL [Concomitant]

REACTIONS (7)
  - Injection site rash [None]
  - Injection site pruritus [None]
  - Injection site exfoliation [None]
  - Chemical burn of skin [None]
  - Conjunctivitis [None]
  - Arthralgia [None]
  - Therapy cessation [None]

NARRATIVE: CASE EVENT DATE: 20230130
